FAERS Safety Report 15454888 (Version 4)
Quarter: 2019Q1

REPORT INFORMATION
  Report Type: Report from Study
  Country: FR (occurrence: FR)
  Receive Date: 20181002
  Receipt Date: 20190122
  Transmission Date: 20190417
  Serious: Yes (Death, Life-Threatening, Hospitalization)
  Sender: FDA-Public Use
  Company Number: FR-EMD SERONO-E2B_90052186

PATIENT
  Age: 66 Year
  Sex: Male
  Weight: 115 kg

DRUGS (18)
  1. DECTANCYL [Concomitant]
     Active Substance: DEXAMETHASONE
     Indication: ADRENALECTOMY
     Dosage: UNK
     Dates: start: 201712
  2. AXITINIB [Suspect]
     Active Substance: AXITINIB
     Indication: RENAL CELL CARCINOMA
     Dosage: UNK, CYCLIC, TWICE DAILY ON CONTINUOUS DOSING SCHEDULE, 4 WEEKS ON, 2 WEEKS OFF
     Dates: start: 20170609
  3. DEXERYL /00557601/ [Concomitant]
     Active Substance: CHLORPHENIRAMINE MALEATE\DEXTROMETHORPHAN HYDROBROMIDE\GUAIFENESIN\PHENYLEPHRINE HYDROCHLORIDE
     Indication: SKIN IRRITATION
     Dosage: UNK
     Dates: start: 20170609
  4. SOLUPRED [PREDNISOLONE METASULFOBENZOATE SODIUM] [Concomitant]
     Active Substance: PREDNISOLONE SODIUM METAZOATE
     Indication: PRODUCT USED FOR UNKNOWN INDICATION
     Dosage: 120 MG, UNK
     Route: 048
     Dates: start: 20180712, end: 20180713
  5. HYDROCORTISONE. [Concomitant]
     Active Substance: HYDROCORTISONE
     Indication: ADRENALECTOMY
     Dosage: UNK
     Dates: start: 201712
  6. BISOPROLOL [Concomitant]
     Active Substance: BISOPROLOL
     Indication: CARDIAC DYSFUNCTION
     Dosage: 5 UNK, 1X/DAY, IN THE MORNING
     Dates: start: 20170804
  7. PANTOPRAZOLE [Concomitant]
     Active Substance: PANTOPRAZOLE
     Indication: PRODUCT USED FOR UNKNOWN INDICATION
     Dosage: 40 UNK, UNK
  8. STAGID [Concomitant]
     Active Substance: METFORMIN PAMOATE
     Indication: DIABETES MELLITUS
     Dosage: UNK
  9. AXITINIB [Suspect]
     Active Substance: AXITINIB
     Dosage: 3 MG, DAILY
     Dates: start: 20180404
  10. AXITINIB [Suspect]
     Active Substance: AXITINIB
     Dosage: 3 MG, 2X/DAY
     Dates: end: 20180706
  11. LEVOTHYROX [Concomitant]
     Active Substance: LEVOTHYROXINE
     Indication: THYROIDECTOMY
     Dosage: 125 TO 150, IN ALTERNATION EVERY OTHER DAY
     Dates: start: 201411
  12. TRIATEC /00885601/ [Concomitant]
     Active Substance: RAMIPRIL
     Indication: CARDIAC DYSFUNCTION
     Dosage: 5 UNK, 1X/DAY, IN THE MORNING
     Dates: start: 20170804
  13. KARDEGIC [Concomitant]
     Active Substance: ASPIRIN DL-LYSINE
     Indication: POLYCYTHAEMIA
     Dosage: 75 UNK, 1X/DAY, IN THE EVENING
     Dates: start: 201705
  14. FORLAX [Concomitant]
     Active Substance: POLYETHYLENE GLYCOL 4000
     Indication: PRODUCT USED FOR UNKNOWN INDICATION
     Dosage: 2 UNK, 1X/DAY, IN THE MORNING
  15. SOLUPRED [PREDNISOLONE METASULFOBENZOATE SODIUM] [Concomitant]
     Active Substance: PREDNISOLONE SODIUM METAZOATE
     Dosage: 100 MG, UNK
     Route: 048
     Dates: start: 20180714
  16. AVELUMAB [Suspect]
     Active Substance: AVELUMAB
     Indication: RENAL CELL CARCINOMA
     Dosage: 1160 MG, CYCLIC (EVERY 2 WEEKS)
     Route: 042
     Dates: start: 20170609, end: 20180629
  17. SOLUPRED [PREDNISOLONE METASULFOBENZOATE SODIUM] [Concomitant]
     Active Substance: PREDNISOLONE SODIUM METAZOATE
     Dosage: UNK
     Route: 048
  18. ALDACTONE [Concomitant]
     Active Substance: SPIRONOLACTONE
     Indication: CARDIAC DYSFUNCTION
     Dosage: 25 UNK, 1X/DAY, IN THE MORNING
     Dates: start: 20180403

REACTIONS (2)
  - Pancreatitis [Fatal]
  - Pancreatitis [Recovered/Resolved]

NARRATIVE: CASE EVENT DATE: 20180709
